FAERS Safety Report 6151823-2 (Version None)
Quarter: 2009Q2

REPORT INFORMATION
  Report Type: 
  Country: None (occurrence: None)
  Receive Date: 20090410
  Receipt Date: 20090401
  Transmission Date: 20091009
  Serious: Yes (Other)
  Sender: FDA-Public Use
  Company Number: US-JNJFOC-20050600112

PATIENT
  Sex: Female
  Weight: 68.4 kg

DRUGS (6)
  1. REMICADE [Suspect]
     Dosage: MANY YEARS.
     Route: 042
  2. REMICADE [Suspect]
     Indication: CROHN'S DISEASE
     Route: 042
  3. AZA [Concomitant]
     Indication: CROHN'S DISEASE
  4. PREDNISONE [Concomitant]
     Indication: CROHN'S DISEASE
  5. PENTAZA [Concomitant]
     Indication: CROHN'S DISEASE
     Dosage: 3000/DAY
  6. IMURAN [Concomitant]
     Indication: CROHN'S DISEASE
     Dosage: 100/DAY

REACTIONS (2)
  - DRUG EXPOSURE DURING PREGNANCY [None]
  - RHESUS ANTIBODIES POSITIVE [None]
